FAERS Safety Report 9353091 (Version 2)
Quarter: 2013Q2

REPORT INFORMATION
  Report Type: Spontaneous
  Country: US (occurrence: US)
  Receive Date: 20130618
  Receipt Date: 20130627
  Transmission Date: 20140414
  Serious: Yes (Hospitalization)
  Sender: FDA-Public Use
  Company Number: US-JNJFOC-20130606758

PATIENT
  Sex: Male

DRUGS (1)
  1. XARELTO [Suspect]
     Indication: ELBOW OPERATION
     Route: 048
     Dates: start: 201305, end: 2013

REACTIONS (1)
  - Haemoglobin decreased [Recovered/Resolved]
